FAERS Safety Report 9024354 (Version 1)
Quarter: 2013Q1

REPORT INFORMATION
  Report Type: Spontaneous
  Country: US (occurrence: US)
  Receive Date: 20130121
  Receipt Date: 20130121
  Transmission Date: 20140127
  Serious: Yes (Hospitalization)
  Sender: FDA-Public Use
  Company Number: US-BAYER-2013-005129

PATIENT
  Age: 30 Year
  Sex: Female
  Weight: 71.25 kg

DRUGS (11)
  1. YAZ [Suspect]
  2. YASMIN [Suspect]
     Indication: CONTRACEPTION
  3. METRONIDAZOLE [Concomitant]
     Dosage: 500 MG, BID 10D
     Route: 048
     Dates: start: 20061013
  4. PAXIL CR [Concomitant]
     Indication: ANXIETY
     Dosage: 25 MG, UNK
  5. FLAGYL [Concomitant]
  6. LEXAPRO [Concomitant]
  7. ATIVAN [Concomitant]
     Dosage: UNK, AS NEEDED
  8. PERCOCET [Concomitant]
     Indication: MUSCULOSKELETAL PAIN
     Dosage: 5/325, 1-2 TAB Q4HR AS NEEDED
  9. OXYCODONE/APAP [Concomitant]
     Dosage: 5/325, 1-2 TAB EVERY 4 HOURS AS NEEDED
  10. DIFLUCAN [Concomitant]
     Indication: VAGINAL INFECTION
     Dosage: 150
     Route: 048
  11. METROGEL [Concomitant]
     Indication: VAGINAL INFECTION

REACTIONS (1)
  - Pulmonary embolism [Recovering/Resolving]
